FAERS Safety Report 16580063 (Version 2)
Quarter: 2019Q3

REPORT INFORMATION
  Report Type: Spontaneous
  Country: US (occurrence: US)
  Receive Date: 20190716
  Receipt Date: 20190718
  Transmission Date: 20191004
  Serious: No
  Sender: FDA-Public Use
  Company Number: US-DSJP-DSU-2019-127229

PATIENT

DRUGS (4)
  1. COLESEVELAM HCL [Suspect]
     Active Substance: COLESEVELAM HYDROCHLORIDE
     Indication: BLOOD CHOLESTEROL INCREASED
     Dosage: 6 DF, QD
     Route: 048
     Dates: start: 201907, end: 20190711
  2. WELCHOL [Suspect]
     Active Substance: COLESEVELAM HYDROCHLORIDE
     Dosage: UNK
     Route: 048
     Dates: start: 20190712
  3. WELCHOL [Suspect]
     Active Substance: COLESEVELAM HYDROCHLORIDE
     Indication: BLOOD CHOLESTEROL INCREASED
     Dosage: 6 DF, QD
     Route: 048
     Dates: start: 1999, end: 201907
  4. METOPROLOL. [Concomitant]
     Active Substance: METOPROLOL
     Indication: HYPERTENSION
     Dosage: UNK
     Route: 048

REACTIONS (8)
  - Dysphonia [Recovering/Resolving]
  - Product dose omission [Unknown]
  - Feeling abnormal [Unknown]
  - Insomnia [Unknown]
  - Dry throat [Unknown]
  - Pain in extremity [Unknown]
  - Limb discomfort [Unknown]
  - Eye irritation [Unknown]

NARRATIVE: CASE EVENT DATE: 201907
